FAERS Safety Report 14341350 (Version 1)
Quarter: 2018Q1

REPORT INFORMATION
  Report Type: Spontaneous
  Country: US (occurrence: US)
  Receive Date: 20180102
  Receipt Date: 20180102
  Transmission Date: 20180509
  Serious: Yes (Other)
  Sender: FDA-Public Use
  Company Number: US-TEVA-773314USA

PATIENT
  Sex: Female

DRUGS (1)
  1. RIZATRIPTAN BENZOATE. [Suspect]
     Active Substance: RIZATRIPTAN BENZOATE
     Indication: MIGRAINE
     Dosage: AS NEEDED
     Route: 065
     Dates: start: 20170521

REACTIONS (7)
  - Gluten sensitivity [Unknown]
  - Pain [Not Recovered/Not Resolved]
  - Migraine [Unknown]
  - Sneezing [Unknown]
  - Arthralgia [Unknown]
  - Swelling face [Recovered/Resolved]
  - Hypersensitivity [Unknown]

NARRATIVE: CASE EVENT DATE: 20170522
